FAERS Safety Report 4548712-3 (Version None)
Quarter: 2005Q1

REPORT INFORMATION
  Report Type: 
  Country: None (occurrence: None)
  Receive Date: 20050106
  Receipt Date: 20041221
  Transmission Date: 20050727
  Serious: Yes (Other)
  Sender: FDA-Public Use
  Company Number: 2004IM000941

PATIENT

DRUGS (6)
  1. INFERGEN [Suspect]
     Indication: HEPATITIS C
     Dosage: 9 UG; QD; ORAL
     Route: 048
     Dates: start: 20041014
  2. RIBAVIRIN [Suspect]
     Indication: HEPATITIS C
     Dosage: 1200 MG; QS; ORAL
     Route: 048
     Dates: start: 20041014
  3. GLUCOPHAGE [Concomitant]
  4. GLUCOTROL [Concomitant]
  5. HYDROCHLOROTHIAZIDE [Concomitant]
  6. ENALPRIL [Concomitant]

REACTIONS (2)
  - HAEMOLYTIC ANAEMIA [None]
  - HYPERURICAEMIA [None]
